FAERS Safety Report 19801442 (Version 1)
Quarter: 2021Q3

REPORT INFORMATION
  Report Type: Spontaneous
  Country: GB (occurrence: GB)
  Receive Date: 20210907
  Receipt Date: 20210907
  Transmission Date: 20211014
  Serious: Yes (Hospitalization, Disabling)
  Sender: FDA-Public Use
  Company Number: NVSC2021GB202620

PATIENT
  Age: 35 Year
  Sex: Female

DRUGS (1)
  1. CLARITHROMYCIN. [Suspect]
     Active Substance: CLARITHROMYCIN
     Indication: ABDOMINAL WALL INFECTION
     Dosage: UNK
     Route: 048

REACTIONS (1)
  - Acute psychosis [Recovering/Resolving]
